FAERS Safety Report 8068365 (Version 8)
Quarter: 2013Q3

REPORT INFORMATION
  Report Type: Report from Study
  Country: US (occurrence: US)
  Receive Date: 20110804
  Receipt Date: 20130705
  Transmission Date: 20140515
  Serious: Yes (Hospitalization)
  Sender: FDA-Public Use
  Company Number: US-JNJFOC-20110712044

PATIENT
  Age: 12 Year
  Sex: Female
  Weight: 24 kg

DRUGS (12)
  1. REMICADE [Suspect]
     Indication: CROHN^S DISEASE
     Route: 042
     Dates: end: 20120913
  2. REMICADE [Suspect]
     Indication: CROHN^S DISEASE
     Route: 042
     Dates: start: 20110218
  3. REMICADE [Suspect]
     Indication: CROHN^S DISEASE
     Route: 042
     Dates: start: 20080814
  4. REMICADE [Suspect]
     Indication: CROHN^S DISEASE
     Route: 042
     Dates: start: 20101111, end: 20101111
  5. 6-MERCAPTOPURINE [Concomitant]
  6. MULTIVITAMINS [Concomitant]
  7. IRON [Concomitant]
  8. BUDESONIDE [Concomitant]
     Route: 065
  9. 5-ASA [Concomitant]
     Route: 048
  10. VITAMIN D [Concomitant]
     Route: 065
  11. GROWTH HORMONE [Concomitant]
     Route: 065
  12. HUMIRA [Concomitant]
     Route: 065
     Dates: start: 201101, end: 201102

REACTIONS (2)
  - Failure to thrive [Recovered/Resolved]
  - Crohn^s disease [Recovered/Resolved]
